FAERS Safety Report 19985303 (Version 9)
Quarter: 2022Q1

REPORT INFORMATION
  Report Type: Report from Study
  Country: CA (occurrence: CA)
  Receive Date: 20211022
  Receipt Date: 20220222
  Transmission Date: 20220424
  Serious: Yes (Disabling, Other)
  Sender: FDA-Public Use
  Company Number: CA-SA-SAC20210131000191

PATIENT
  Age: 73 Year
  Sex: Female

DRUGS (13)
  1. SARILUMAB [Suspect]
     Active Substance: SARILUMAB
     Indication: Rheumatoid arthritis
     Dosage: 200 MG, QOW
     Route: 058
     Dates: start: 20201217
  2. SARILUMAB [Suspect]
     Active Substance: SARILUMAB
     Dosage: UNK
     Dates: start: 20211021
  3. COVID-19 VACCINE NOS [Suspect]
     Active Substance: COVID-19 VACCINE NOS
     Indication: COVID-19 immunisation
     Dosage: UNK
  4. COVID-19 VACCINE NOS [Suspect]
     Active Substance: COVID-19 VACCINE NOS
     Dosage: UNK
  5. COVID-19 VACCINE NOS [Suspect]
     Active Substance: COVID-19 VACCINE NOS
     Dosage: UNK
     Dates: start: 20210605
  6. THYROID [Suspect]
     Active Substance: LEVOTHYROXINE\LIOTHYRONINE
  7. METHOTREXATE [Concomitant]
     Active Substance: METHOTREXATE
     Dosage: UNK
  8. CALCIUM [Concomitant]
     Active Substance: CALCIUM
  9. GLUCOSAMINE [Concomitant]
     Active Substance: GLUCOSAMINE
  10. VITAMIN D NOS [Concomitant]
     Active Substance: VITAMIN D NOS
  11. FOLIC ACID [Concomitant]
     Active Substance: FOLIC ACID
  12. FOLIC ACID [Concomitant]
     Active Substance: FOLIC ACID
  13. VITAMIN D3 [Concomitant]
     Active Substance: CHOLECALCIFEROL

REACTIONS (48)
  - Pneumothorax [Not Recovered/Not Resolved]
  - Cataract [Not Recovered/Not Resolved]
  - Impaired driving ability [Not Recovered/Not Resolved]
  - Rheumatoid arthritis [Unknown]
  - Joint range of motion decreased [Unknown]
  - Arthralgia [Unknown]
  - Pulmonary oedema [Not Recovered/Not Resolved]
  - Pneumothorax [Recovering/Resolving]
  - Joint swelling [Not Recovered/Not Resolved]
  - Blood pressure abnormal [Not Recovered/Not Resolved]
  - Nasal congestion [Recovering/Resolving]
  - Condition aggravated [Recovering/Resolving]
  - Cough [Recovering/Resolving]
  - Arthralgia [Not Recovered/Not Resolved]
  - Amnesia [Unknown]
  - Neck pain [Unknown]
  - Muscle atrophy [Unknown]
  - Laboratory test abnormal [Unknown]
  - Osteoporosis [Unknown]
  - Pollakiuria [Unknown]
  - Pain [Not Recovered/Not Resolved]
  - Inflammation [Not Recovered/Not Resolved]
  - Supraventricular extrasystoles [Recovered/Resolved]
  - Heart rate irregular [Recovered/Resolved]
  - Heart rate increased [Recovered/Resolved]
  - Dyspnoea [Recovering/Resolving]
  - Thoracic cavity drainage [Recovering/Resolving]
  - Oropharyngeal pain [Recovered/Resolved]
  - Rhinorrhoea [Recovered/Resolved]
  - Dysphonia [Recovering/Resolving]
  - Anxiety [Recovering/Resolving]
  - Anxiety [Not Recovered/Not Resolved]
  - Upper-airway cough syndrome [Not Recovered/Not Resolved]
  - Chest pain [Not Recovered/Not Resolved]
  - Headache [Not Recovered/Not Resolved]
  - Blood pressure increased [Not Recovered/Not Resolved]
  - Fatigue [Not Recovered/Not Resolved]
  - Unevaluable event [Unknown]
  - Therapeutic response decreased [Not Recovered/Not Resolved]
  - Therapeutic response unexpected [Unknown]
  - Intentional dose omission [Unknown]
  - Product temperature excursion issue [Unknown]
  - Product storage error [Unknown]
  - Inappropriate schedule of product administration [Unknown]
  - Inappropriate schedule of product administration [Not Recovered/Not Resolved]
  - Inappropriate schedule of product administration [Unknown]
  - Synovitis [Not Recovered/Not Resolved]
  - Impaired healing [Not Recovered/Not Resolved]

NARRATIVE: CASE EVENT DATE: 20210101
